FAERS Safety Report 11462833 (Version 1)
Quarter: 2015Q3

REPORT INFORMATION
  Report Type: Spontaneous
  Country: US (occurrence: US)
  Receive Date: 20150831
  Receipt Date: 20150831
  Transmission Date: 20151125
  Serious: No
  Sender: FDA-Public Use
  Company Number: US-ELI_LILLY_AND_COMPANY-US201101006836

PATIENT
  Age: 51 Year
  Sex: Female

DRUGS (10)
  1. ASPIRIN. [Concomitant]
     Active Substance: ASPIRIN
     Dosage: UNK, UNKNOWN
  2. CYMBALTA [Suspect]
     Active Substance: DULOXETINE HYDROCHLORIDE
     Dosage: 180 MG, DAILY (1/D)
  3. LIPITOR [Concomitant]
     Active Substance: ATORVASTATIN CALCIUM
     Dosage: UNK, UNKNOWN
  4. CYMBALTA [Suspect]
     Active Substance: DULOXETINE HYDROCHLORIDE
     Dosage: 120 MG, UNKNOWN
  5. CYMBALTA [Suspect]
     Active Substance: DULOXETINE HYDROCHLORIDE
     Dosage: 150 MG, UNKNOWN
  6. OXYCODONE [Concomitant]
     Active Substance: OXYCODONE
     Indication: HEADACHE
     Dosage: UNK, UNKNOWN
  7. CYMBALTA [Suspect]
     Active Substance: DULOXETINE HYDROCHLORIDE
     Indication: DEPRESSION
     Dosage: 60 MG, UNKNOWN
     Dates: start: 20010911
  8. LEVOTHYROXINE. [Concomitant]
     Active Substance: LEVOTHYROXINE
     Dosage: UNK, UNKNOWN
  9. AMBIEN [Concomitant]
     Active Substance: ZOLPIDEM TARTRATE
     Indication: SLEEP DISORDER
     Dosage: UNK, UNKNOWN
  10. TOPAMAX [Concomitant]
     Active Substance: TOPIRAMATE
     Dosage: UNK, UNKNOWN

REACTIONS (4)
  - Seasonal affective disorder [Unknown]
  - Drug effect decreased [Unknown]
  - Depression [Unknown]
  - Prescribed overdose [Unknown]
